FAERS Safety Report 9404448 (Version 2)
Quarter: 2013Q3

REPORT INFORMATION
  Report Type: Spontaneous
  Country: US (occurrence: None)
  Receive Date: 20130715
  Receipt Date: 20130724
  Transmission Date: 20140515
  Serious: Yes (Hospitalization)
  Sender: FDA-Public Use
  Company Number: US-JNJFOC-20130700592

PATIENT
  Age: 52 Year
  Sex: Female
  Weight: 59.9 kg

DRUGS (3)
  1. DACOGEN (DECITABINE) LYOPHILIZED POWDER [Suspect]
     Indication: ACUTE MYELOID LEUKAEMIA
     Route: 042
     Dates: start: 20130613
  2. DAUNORUBICIN [Suspect]
     Indication: ACUTE MYELOID LEUKAEMIA
     Route: 042
  3. CYTARABINE [Suspect]
     Indication: ACUTE MYELOID LEUKAEMIA
     Route: 042

REACTIONS (5)
  - Erythema nodosum [None]
  - Hypoxia [None]
  - Troponin I increased [None]
  - Skin disorder [None]
  - Dyspnoea [None]
